FAERS Safety Report 20645546 (Version 1)
Quarter: 2022Q1

REPORT INFORMATION
  Report Type: Spontaneous
  Country: US (occurrence: US)
  Receive Date: 20220328
  Receipt Date: 20220328
  Transmission Date: 20220424
  Serious: Yes (Other)
  Sender: FDA-Public Use
  Company Number: US-NOVARTISTESTPH-NVSC2022US063363

PATIENT
  Age: 22 Year
  Sex: Male
  Weight: 84.2 kg

DRUGS (1)
  1. TISAGENLECLEUCEL [Suspect]
     Active Substance: TISAGENLECLEUCEL
     Indication: B-cell type acute leukaemia
     Dosage: 1.3 X 10^8
     Route: 042
     Dates: start: 20210427

REACTIONS (1)
  - Post-depletion B-cell recovery [Unknown]
